FAERS Safety Report 11687152 (Version 1)
Quarter: 2015Q4

REPORT INFORMATION
  Report Type: Report from Study
  Country: JP (occurrence: JP)
  Receive Date: 20151030
  Receipt Date: 20151030
  Transmission Date: 20160304
  Serious: Yes (Death, Other)
  Sender: FDA-Public Use
  Company Number: JP-SHIRE-JP201513471

PATIENT
  Age: 74 Year
  Sex: Female

DRUGS (14)
  1. 405 (LANTHANUM CARBONATE) [Suspect]
     Active Substance: LANTHANUM CARBONATE
     Dosage: 1500 MG, UNKNOWN (DAY)
     Route: 048
     Dates: start: 20090615, end: 20090713
  2. 405 (LANTHANUM CARBONATE) [Suspect]
     Active Substance: LANTHANUM CARBONATE
     Indication: HYPERPHOSPHATAEMIA
     Dosage: 1500 MG, UNKNOWN (DAY)
     Route: 048
     Dates: start: 20130627
  3. 405 (LANTHANUM CARBONATE) [Suspect]
     Active Substance: LANTHANUM CARBONATE
     Dosage: 2250 MG, UNKNOWN (DAY)
     Route: 048
     Dates: start: 20100329
  4. 405 (LANTHANUM CARBONATE) [Suspect]
     Active Substance: LANTHANUM CARBONATE
     Dosage: 750 MG, UNKNOWN (DAY)
     Route: 048
     Dates: start: 20090727, end: 20090823
  5. TANKARU [Concomitant]
     Indication: HYPERPHOSPHATAEMIA
     Dosage: 1500 MG, UNKNOWN
     Route: 048
  6. RENAGEL [Concomitant]
     Active Substance: SEVELAMER HYDROCHLORIDE
     Indication: HYPERPHOSPHATAEMIA
     Dosage: 3000 MG, UNKNOWN
     Route: 048
     Dates: end: 20090628
  7. 405 (LANTHANUM CARBONATE) [Suspect]
     Active Substance: LANTHANUM CARBONATE
     Indication: HYPERPHOSPHATAEMIA
     Dosage: 750 MG, UNKNOWN (DAY)
     Route: 048
     Dates: start: 20090601, end: 20090614
  8. RENAGEL [Concomitant]
     Active Substance: SEVELAMER HYDROCHLORIDE
     Dosage: 4500 MG, UNKNOWN
     Route: 048
     Dates: start: 20090629, end: 20090712
  9. RENAGEL [Concomitant]
     Active Substance: SEVELAMER HYDROCHLORIDE
     Dosage: 6000 MG, UNKNOWN
     Route: 048
     Dates: start: 20090713, end: 20090727
  10. 405 (LANTHANUM CARBONATE) [Suspect]
     Active Substance: LANTHANUM CARBONATE
     Dosage: 2250MG, UNKNOWN (DAY)
     Route: 048
     Dates: end: 20130626
  11. 405 (LANTHANUM CARBONATE) [Suspect]
     Active Substance: LANTHANUM CARBONATE
     Dosage: 1500 MG, UNKNOWN (DAY)
     Route: 048
     Dates: start: 20090824, end: 20100328
  12. OXAROL [Concomitant]
     Active Substance: MAXACALCITOL
     Indication: PRODUCT USED FOR UNKNOWN INDICATION
     Dosage: 2.5 ?G, OTHER (3 TIMES PER WEEEK)
     Route: 065
     Dates: start: 20090601, end: 20090612
  13. OXAROL [Concomitant]
     Active Substance: MAXACALCITOL
     Dosage: 5 ?G, OTHER (2 TIMES PER WEEK)
     Route: 065
     Dates: start: 20090615, end: 20090807
  14. OXAROL [Concomitant]
     Active Substance: MAXACALCITOL
     Dosage: 2.5 ?G, 1X/WEEK
     Route: 065
     Dates: start: 20090615, end: 20090807

REACTIONS (1)
  - Death [Fatal]
